FAERS Safety Report 9618787 (Version 2)
Quarter: 2013Q4

REPORT INFORMATION
  Report Type: Spontaneous
  Country: GB (occurrence: GB)
  Receive Date: 20131014
  Receipt Date: 20131014
  Transmission Date: 20140711
  Serious: Yes (Hospitalization)
  Sender: FDA-Public Use
  Company Number: PHFR2013GB004839

PATIENT
  Age: 54 Year
  Sex: Male
  Weight: 113.7 kg

DRUGS (8)
  1. CLOZARIL [Suspect]
     Indication: SCHIZOAFFECTIVE DISORDER
     Dosage: UNK
     Route: 048
     Dates: start: 20010701
  2. CLOZARIL [Suspect]
     Dosage: 275 MG, UNK
     Route: 048
  3. SIMVASTATIN [Concomitant]
     Indication: BLOOD CHOLESTEROL INCREASED
     Dosage: 40 MG, UNK
     Route: 048
  4. ASPIRIN [Concomitant]
     Dosage: 75 MG, UNK
     Route: 048
  5. LITHIUM CARBONATE [Concomitant]
     Indication: SCHIZOAFFECTIVE DISORDER
     Dosage: 800 MG, UNK
     Route: 048
  6. FERROUS SULPHATE [Concomitant]
     Indication: IRON DEFICIENCY ANAEMIA
     Dosage: 600 MG, UNK
     Route: 048
  7. BETNOVATE [Concomitant]
     Indication: ECZEMA
     Dosage: UNK
     Route: 061
     Dates: start: 20130910
  8. EPADERM [Concomitant]
     Indication: ECZEMA
     Dosage: UNK
     Route: 061

REACTIONS (6)
  - Haemorrhage [Recovering/Resolving]
  - Eczema [Recovering/Resolving]
  - Rash [Recovering/Resolving]
  - Skin exfoliation [Unknown]
  - Vitamin D deficiency [Not Recovered/Not Resolved]
  - Eosinophil count increased [Recovered/Resolved]
